FAERS Safety Report 22178704 (Version 2)
Quarter: 2023Q2

REPORT INFORMATION
  Report Type: Report from Study
  Country: US (occurrence: US)
  Receive Date: 20230405
  Receipt Date: 20230612
  Transmission Date: 20230722
  Serious: Yes (Other)
  Sender: FDA-Public Use
  Company Number: US-ABBVIE-4301112

PATIENT
  Sex: Female

DRUGS (2)
  1. HUMIRA [Suspect]
     Active Substance: ADALIMUMAB
     Indication: Rheumatoid arthritis
     Dosage: FIRST ADMIN DATE-2023
     Route: 058
  2. HUMIRA [Suspect]
     Active Substance: ADALIMUMAB
     Dosage: FIRST ADMIN DATE-13 JAN 2023?LAST ADMINISTRATION DATE WAS 2023
     Route: 058

REACTIONS (3)
  - Exostosis [Unknown]
  - Nodule [Unknown]
  - Synovial cyst removal [Unknown]

NARRATIVE: CASE EVENT DATE: 20230101
